FAERS Safety Report 24335446 (Version 1)
Quarter: 2024Q3

REPORT INFORMATION
  Report Type: Spontaneous
  Country: US (occurrence: US)
  Receive Date: 20240919
  Receipt Date: 20240919
  Transmission Date: 20241017
  Serious: No
  Sender: ASTELLAS
  Company Number: US-ASTELLAS-2024-AER-005846

PATIENT
  Age: 50 Year
  Sex: Female

DRUGS (3)
  1. VEOZAH [Suspect]
     Active Substance: FEZOLINETANT
     Indication: Menopausal symptoms
     Route: 065
     Dates: start: 202407
  2. VEOZAH [Suspect]
     Active Substance: FEZOLINETANT
     Dosage: HALF TABLET
     Route: 065
  3. ASPIRIN [Concomitant]
     Active Substance: ASPIRIN
     Indication: Product used for unknown indication
     Dosage: TAKES DAILY ASPIRIN.
     Route: 065

REACTIONS (3)
  - Chest pain [Unknown]
  - Palpitations [Unknown]
  - Wrong technique in product usage process [Unknown]
